FAERS Safety Report 5714882-4 (Version None)
Quarter: 2008Q2

REPORT INFORMATION
  Report Type: 
  Country: None (occurrence: None)
  Receive Date: 20080423
  Receipt Date: 20070911
  Transmission Date: 20081010
  Serious: Yes (Hospitalization)
  Sender: FDA-Public Use
  Company Number: US-BAYER-US-2007-032104

PATIENT
  Age: 39 Year
  Sex: Female
  Weight: 67 kg

DRUGS (10)
  1. LEUKINE [Suspect]
     Indication: PANCREATIC CARCINOMA
     Route: 058
     Dates: start: 20070824, end: 20070825
  2. GEMZAR [Concomitant]
     Route: 042
     Dates: start: 20070817
  3. KYTRIL [Concomitant]
     Indication: PREMEDICATION
  4. DECADRON /CAN/ [Concomitant]
     Route: 042
  5. DECADRON /CAN/ [Concomitant]
     Dosage: UNIT DOSE: 4 MG
     Dates: start: 20070818, end: 20070820
  6. IRON DEXTRAN [Concomitant]
     Route: 042
     Dates: start: 20070815
  7. REGLAN [Concomitant]
     Indication: NAUSEA
     Route: 042
     Dates: start: 20070824
  8. ATIVAN [Concomitant]
     Indication: NAUSEA
     Route: 048
     Dates: start: 20070817
  9. COMPAZINE [Concomitant]
     Indication: NAUSEA
     Route: 048
     Dates: start: 20070817
  10. PROCRIT [Concomitant]
     Dates: start: 20070824

REACTIONS (5)
  - ABDOMINAL PAIN [None]
  - CHEST DISCOMFORT [None]
  - DIZZINESS [None]
  - LOSS OF CONSCIOUSNESS [None]
  - NAUSEA [None]
